FAERS Safety Report 17816535 (Version 4)
Quarter: 2020Q3

REPORT INFORMATION
  Report Type: Report from Study
  Country: US (occurrence: US)
  Receive Date: 20200522
  Receipt Date: 20200707
  Transmission Date: 20201102
  Serious: Yes (Life-Threatening)
  Sender: FDA-Public Use
  Company Number: US-ROCHE-2594802

PATIENT
  Age: 66 Year
  Sex: Male
  Weight: 110.4 kg

DRUGS (42)
  1. AMLODIPINE [Concomitant]
     Active Substance: AMLODIPINE BESYLATE
     Indication: HYPERTENSION
     Route: 065
     Dates: start: 20200526
  2. BUPRENORPHINE. [Concomitant]
     Active Substance: BUPRENORPHINE
     Indication: PAIN
     Route: 065
     Dates: start: 20200506
  3. GABAPENTIN. [Concomitant]
     Active Substance: GABAPENTIN
     Indication: PAIN
     Route: 065
     Dates: start: 20200410, end: 20200530
  4. HYDRALAZINE [Concomitant]
     Active Substance: HYDRALAZINE HYDROCHLORIDE
     Indication: HYPERTENSION
     Route: 065
     Dates: start: 20200523, end: 20200526
  5. INSULIN GLARGINE [Concomitant]
     Active Substance: INSULIN GLARGINE
     Indication: HYPERGLYCAEMIA
     Dosage: 50 UNIT
     Route: 065
     Dates: start: 20200429
  6. LABETALOL [Concomitant]
     Active Substance: LABETALOL\LABETALOL HYDROCHLORIDE
     Indication: HYPERTENSION
     Route: 065
     Dates: start: 20200509, end: 20200523
  7. POTASSIUM CHLORIDE. [Concomitant]
     Active Substance: POTASSIUM CHLORIDE
     Indication: PROPHYLAXIS
     Dosage: 40 OTHER
     Route: 065
     Dates: start: 20200415, end: 20200503
  8. PLASMA [Concomitant]
     Active Substance: HUMAN PLASMA
     Indication: COVID-19 PNEUMONIA
     Dosage: 1 UNIT
     Route: 065
     Dates: start: 20200429, end: 20200429
  9. ETOMIDATE. [Concomitant]
     Active Substance: ETOMIDATE
     Route: 065
     Dates: start: 20200620, end: 20200620
  10. KETAMINE [Concomitant]
     Active Substance: KETAMINE
     Indication: SEDATION
     Route: 065
     Dates: start: 20200504, end: 20200504
  11. LIDOCAINE. [Concomitant]
     Active Substance: LIDOCAINE
     Indication: PAIN
     Route: 065
     Dates: start: 20200409, end: 20200529
  12. ALBUTEROL;IPRATROPIUM [Concomitant]
     Active Substance: ALBUTEROL\IPRATROPIUM
     Indication: COVID-19 PNEUMONIA
     Route: 065
     Dates: start: 20200512
  13. CISATRACURIUM. [Concomitant]
     Active Substance: CISATRACURIUM
     Indication: MECHANICAL VENTILATION
     Route: 065
     Dates: start: 20200515, end: 20200515
  14. DEXMEDETOMIDINE. [Concomitant]
     Active Substance: DEXMEDETOMIDINE
     Indication: PROPHYLAXIS
     Route: 065
     Dates: start: 20200507, end: 20200525
  15. ACTIVASE [Concomitant]
     Active Substance: ALTEPLASE
     Route: 065
     Dates: start: 20200503, end: 20200521
  16. LISINOPRIL. [Concomitant]
     Active Substance: LISINOPRIL
     Indication: HYPERTENSION
     Route: 065
     Dates: start: 20200501, end: 20200503
  17. OXYCODONE [Concomitant]
     Active Substance: OXYCODONE
     Indication: PAIN
     Route: 065
     Dates: start: 20200508
  18. BISACODYL. [Concomitant]
     Active Substance: BISACODYL
     Indication: CONSTIPATION
     Route: 065
     Dates: start: 20200429, end: 20200513
  19. CEFEPIME [Concomitant]
     Active Substance: CEFEPIME HYDROCHLORIDE
     Indication: PROPHYLAXIS
     Route: 065
     Dates: start: 20200428, end: 20200525
  20. MIDAZOLAM. [Concomitant]
     Active Substance: MIDAZOLAM
     Indication: SEDATION
     Route: 065
     Dates: start: 20200507, end: 20200529
  21. VANCOMYCIN [Concomitant]
     Active Substance: VANCOMYCIN
     Indication: PROPHYLAXIS
     Route: 065
     Dates: start: 20200429, end: 20200501
  22. ALBUMIN [Concomitant]
     Active Substance: ALBUMIN HUMAN
     Indication: HYPOTENSION
     Route: 065
     Dates: start: 20200514, end: 20200515
  23. ENOXAPARIN [Concomitant]
     Active Substance: ENOXAPARIN
     Indication: PROPHYLAXIS
     Route: 065
     Dates: start: 20200429
  24. FENTANYL. [Concomitant]
     Active Substance: FENTANYL
     Indication: PAIN
     Route: 065
     Dates: start: 20200504
  25. FUROSEMIDE. [Concomitant]
     Active Substance: FUROSEMIDE
     Indication: HYPERTENSION
     Route: 065
     Dates: start: 20200410
  26. METHYLNALTREXONE [Concomitant]
     Active Substance: METHYLNALTREXONE
     Indication: PROPHYLAXIS
     Route: 065
     Dates: start: 20200513, end: 20200513
  27. ROCURONIUM [Concomitant]
     Active Substance: ROCURONIUM BROMIDE
     Indication: MECHANICAL VENTILATION
     Route: 065
     Dates: start: 20200504, end: 20200513
  28. TOCILIZUMAB. [Suspect]
     Active Substance: TOCILIZUMAB
     Indication: COVID-19 PNEUMONIA
     Dosage: DATE OF MOST RECENT DOSE OF TOCILIZUMAB PRIOR TO SAE ONSET 29/APR/2020
     Route: 042
     Dates: start: 20200429
  29. TYLENOL [Concomitant]
     Active Substance: ACETAMINOPHEN
     Indication: PAIN
     Route: 065
     Dates: start: 20200428
  30. LIORESAL [Concomitant]
     Active Substance: BACLOFEN
     Indication: PAIN MANAGEMENT
     Route: 065
     Dates: start: 20200507
  31. CALCIUM GLUCONATE. [Concomitant]
     Active Substance: CALCIUM GLUCONATE
     Indication: PROPHYLAXIS
     Route: 065
     Dates: start: 20200506, end: 20200506
  32. CARVEDILOL. [Concomitant]
     Active Substance: CARVEDILOL
     Indication: HYPERTENSION
     Route: 065
     Dates: start: 20200429
  33. NOREPINEPHRINE. [Concomitant]
     Active Substance: NOREPINEPHRINE
     Indication: HYPOTENSION
     Route: 065
     Dates: start: 20200504, end: 20200504
  34. PROPOFOL. [Concomitant]
     Active Substance: PROPOFOL
     Route: 065
     Dates: start: 20200504, end: 20200509
  35. MUPIROCIN. [Concomitant]
     Active Substance: MUPIROCIN
     Route: 065
     Dates: start: 20200614
  36. PIPERACILLIN AND TAZOBACTAM [Concomitant]
     Active Substance: PIPERACILLIN SODIUM\TAZOBACTAM SODIUM
     Route: 065
     Dates: start: 20200607, end: 20200608
  37. PANTOPRAZOLE [Concomitant]
     Active Substance: PANTOPRAZOLE
     Route: 065
     Dates: start: 20200605, end: 20200607
  38. LIPITOR [Concomitant]
     Active Substance: ATORVASTATIN CALCIUM
     Indication: HYPERLIPIDAEMIA
     Route: 065
     Dates: start: 20200415
  39. CEFAZOLIN [Concomitant]
     Active Substance: CEFAZOLIN
     Route: 065
     Dates: start: 20200512
  40. CHLORHEXIDINE [Concomitant]
     Active Substance: CHLORHEXIDINE
     Indication: MECHANICAL VENTILATION
     Route: 065
     Dates: start: 20200504
  41. GADOBUTROL. [Concomitant]
     Active Substance: GADOBUTROL
     Route: 065
     Dates: start: 20200603, end: 20200603
  42. NALOXONE [Concomitant]
     Active Substance: NALOXONE
     Indication: PROPHYLAXIS
     Route: 065
     Dates: start: 20200428, end: 20200429

REACTIONS (1)
  - Pneumonia staphylococcal [Not Recovered/Not Resolved]

NARRATIVE: CASE EVENT DATE: 20200510
